FAERS Safety Report 10375940 (Version 3)
Quarter: 2014Q4

REPORT INFORMATION
  Report Type: Report from Study
  Country: US (occurrence: US)
  Receive Date: 20140811
  Receipt Date: 20141030
  Transmission Date: 20150528
  Serious: Yes (Hospitalization)
  Sender: FDA-Public Use
  Company Number: US-ACTELION-A-US2014-103476

PATIENT
  Age: 50 Year
  Sex: Female

DRUGS (2)
  1. VENTAVIS [Suspect]
     Active Substance: ILOPROST
     Indication: COR PULMONALE CHRONIC
     Dosage: 5MCG, 6-9 TIMES A DAY
     Route: 055
     Dates: start: 20130617
  2. LETAIRIS [Concomitant]
     Active Substance: AMBRISENTAN

REACTIONS (9)
  - Fatigue [Unknown]
  - Asthenia [Unknown]
  - Dehydration [Unknown]
  - Haemoglobin decreased [Unknown]
  - Dysuria [Unknown]
  - Oropharyngeal pain [Unknown]
  - Fluid retention [Unknown]
  - Gout [Unknown]
  - Renal failure [Unknown]

NARRATIVE: CASE EVENT DATE: 20140723
